FAERS Safety Report 15554522 (Version 1)
Quarter: 2018Q4

REPORT INFORMATION
  Report Type: Spontaneous
  Country: US (occurrence: US)
  Receive Date: 20181026
  Receipt Date: 20181026
  Transmission Date: 20190205
  Serious: Yes (Other)
  Sender: FDA-Public Use
  Company Number: None

PATIENT
  Age: 51 Year
  Sex: Female
  Weight: 72 kg

DRUGS (2)
  1. SOLCO CLONAZEPAM .5 MGS [Suspect]
     Active Substance: CLONAZEPAM
     Indication: HYPERTHYROIDISM
     Dosage: ?          QUANTITY:1 TABLET(S);?
     Route: 048
  2. POTASSIUM [Concomitant]
     Active Substance: POTASSIUM

REACTIONS (8)
  - Dysphagia [None]
  - Agoraphobia [None]
  - Manufacturing materials issue [None]
  - Product complaint [None]
  - Anxiety [None]
  - Impaired work ability [None]
  - Product substitution issue [None]
  - Panic attack [None]

NARRATIVE: CASE EVENT DATE: 20181020
